FAERS Safety Report 9551986 (Version 3)
Quarter: 2013Q4

REPORT INFORMATION
  Report Type: Report from Study
  Country: US (occurrence: US)
  Receive Date: 20130724
  Receipt Date: 20131224
  Transmission Date: 20140711
  Serious: Yes (Death, Other)
  Sender: FDA-Public Use
  Company Number: PHEH2013US002438

PATIENT
  Age: 79 Year
  Sex: Male
  Weight: 56 kg

DRUGS (9)
  1. GLEEVEC [Suspect]
     Indication: GASTRIC CANCER
     Dosage: 400 MG DAILY
     Route: 048
     Dates: start: 20120614
  2. GLEEVEC [Suspect]
     Dosage: 400 MG DAILY
     Route: 048
     Dates: start: 20130615, end: 201308
  3. PREVACID [Concomitant]
     Dosage: UNK UKN, UNK
  4. VITAMIN D [Concomitant]
     Dosage: UNK UKN, UNK
  5. MEGESTROL ACETATE [Concomitant]
     Dosage: UNK UKN, UNK
  6. LISINOPRIL [Concomitant]
     Indication: HYPERTENSION
     Dosage: 20 MG, UNK
     Route: 048
     Dates: start: 2010
  7. HYDROCHLOROTHIAZIDE [Concomitant]
     Dosage: 25 MG, UNK
     Route: 048
     Dates: start: 2010
  8. TYLENOL [Concomitant]
     Dosage: 500 MG, UNK
     Route: 048
     Dates: start: 2011
  9. OMEPRAZOLE AMEL//OMEPRAZOLE [Concomitant]
     Dosage: 20 MG, UNK
     Route: 048
     Dates: start: 2011

REACTIONS (4)
  - Pneumonia [Fatal]
  - Emphysema [Fatal]
  - Cerebrovascular accident [Fatal]
  - Depression [Unknown]
